FAERS Safety Report 10373941 (Version 1)
Quarter: 2014Q1

REPORT INFORMATION
  Report Type: Spontaneous
  Country: US (occurrence: None)
  Receive Date: 20140306
  Receipt Date: 20140306
  Transmission Date: 20141002
  Serious: Yes (Hospitalization)
  Sender: FDA-Public Use
  Company Number: 163-21880-13013912

PATIENT
  Age: 74 Year
  Sex: Female

DRUGS (37)
  1. REVLIMID (LENALIDOMIDE) (CAPSULES) [Suspect]
     Indication: PLASMA CELL MYELOMA
     Route: 048
     Dates: start: 201212
  2. LISINOPRIL [Concomitant]
  3. AMIODARONE [Concomitant]
  4. LMW HEPARIN [Concomitant]
  5. SOLU-MEDROL (METHYLPREDNISOLONE SODIUM SUCCINATE) [Concomitant]
  6. PREDNISONE [Concomitant]
  7. CHOLECALCIFEROL [Concomitant]
  8. BRINZOLAMIDE [Concomitant]
  9. DEXAMETHASONE [Concomitant]
  10. CALCIUM CARBONATE-VITAMIN D2 [Concomitant]
  11. MAGNESIUM OXIDE [Concomitant]
  12. TIMOLOL [Concomitant]
  13. ANASTROZOLE [Concomitant]
  14. SIMVASTATIN [Concomitant]
  15. WARFARIN [Concomitant]
  16. GLIPIZIDE [Concomitant]
  17. LEVOTHYROXINE [Concomitant]
  18. AZITHROMYCIN [Concomitant]
  19. LISINOPRIL-HYDROCHLOROTHIAZIDE [Concomitant]
  20. ACETAMINOPHEN (PARACETAMOL) [Concomitant]
  21. BENZONATATE [Concomitant]
  22. IPRATROPIUM-ALBUTEROL [Concomitant]
  23. INSULIN GLARGINE [Concomitant]
  24. INSULIN ASPART [Concomitant]
  25. OMEPRAZOLE [Concomitant]
  26. ATORVASTATIN [Concomitant]
  27. GUAIFENESIN [Concomitant]
  28. SODIUM CHLORIDE [Concomitant]
  29. NALOXONE [Concomitant]
  30. ONDANSETRON [Concomitant]
  31. MORPHINE [Concomitant]
  32. DEXTROSE [Concomitant]
  33. GLUCAGON HUMAN RECOMBINANT [Concomitant]
  34. POTASSIUM CHLORIDE [Concomitant]
  35. CALCIUM-VITAMIN D3 [Concomitant]
  36. INFLUENZA (INFLUENZA VACCINE) [Concomitant]
  37. PNEUMOCOCCAL [Concomitant]

REACTIONS (1)
  - Pneumonia mycoplasmal [None]
